FAERS Safety Report 13235101 (Version 1)
Quarter: 2017Q1

REPORT INFORMATION
  Report Type: Spontaneous
  Country: IT (occurrence: IT)
  Receive Date: 20170215
  Receipt Date: 20170215
  Transmission Date: 20170428
  Serious: Yes (Other)
  Sender: FDA-Public Use
  Company Number: IT-PFIZER INC-2017062559

PATIENT
  Age: 79 Year
  Sex: Male
  Weight: 60 kg

DRUGS (2)
  1. XALKORI [Suspect]
     Active Substance: CRIZOTINIB
     Indication: LUNG NEOPLASM
     Dosage: 500 MG, 1X/DAY
     Dates: start: 20170102, end: 20170208
  2. XALKORI [Suspect]
     Active Substance: CRIZOTINIB
     Dosage: 200 MG, 2X/DAY

REACTIONS (2)
  - Visual impairment [Not Recovered/Not Resolved]
  - Visual field defect [Not Recovered/Not Resolved]

NARRATIVE: CASE EVENT DATE: 20170208
